FAERS Safety Report 7092864-0 (Version None)
Quarter: 2010Q4

REPORT INFORMATION
  Report Type: 
  Country: None (occurrence: None)
  Receive Date: 20101110
  Receipt Date: 20101101
  Transmission Date: 20110411
  Serious: No
  Sender: FDA-Public Use
  Company Number: US-PFIZER INC-2010139384

PATIENT
  Sex: Female
  Weight: 65.76 kg

DRUGS (2)
  1. XALATAN [Suspect]
     Indication: GLAUCOMA
     Dosage: UNK
     Route: 047
  2. VITAMIN D [Concomitant]
     Dosage: 1000 MG, 1X/DAY
     Route: 048

REACTIONS (2)
  - EYE PAIN [None]
  - PRODUCT DROPPER ISSUE [None]
